FAERS Safety Report 12330101 (Version 3)
Quarter: 2016Q2

REPORT INFORMATION
  Report Type: Spontaneous
  Country: CH (occurrence: CH)
  Receive Date: 20160504
  Receipt Date: 20160610
  Transmission Date: 20160815
  Serious: Yes (Other)
  Sender: FDA-Public Use
  Company Number: CH-BEH-2016061872

PATIENT
  Age: 8 Year
  Sex: Male
  Weight: 24 kg

DRUGS (4)
  1. HIZENTRA [Suspect]
     Active Substance: HUMAN IMMUNOGLOBULIN G
     Dosage: 4 G, QW
     Route: 058
     Dates: start: 20160319, end: 20160319
  2. HIZENTRA [Suspect]
     Active Substance: HUMAN IMMUNOGLOBULIN G
     Indication: HUMORAL IMMUNE DEFECT
     Dosage: UNK
     Route: 058
     Dates: start: 201209
  3. HIZENTRA [Suspect]
     Active Substance: HUMAN IMMUNOGLOBULIN G
     Dosage: INFUSION TIME: OVER 4 HR, NEEDLE LENGTH: 6 [UNIT NOT PROVIDED]
     Route: 058
  4. EMLA PATCHES [Concomitant]

REACTIONS (4)
  - Wrong technique in product usage process [None]
  - Injection site necrosis [Recovered/Resolved]
  - Infusion site vesicles [Recovered/Resolved]
  - Infusion site ulcer [Recovered/Resolved]

NARRATIVE: CASE EVENT DATE: 20160319
